FAERS Safety Report 5038658-9 (Version None)
Quarter: 2006Q2

REPORT INFORMATION
  Report Type: 
  Country: None (occurrence: None)
  Receive Date: 20060623
  Receipt Date: 20060607
  Transmission Date: 20061013
  Serious: Yes (Death)
  Sender: FDA-Public Use
  Company Number: 06-NIP00099

PATIENT
  Age: 39 Year
  Sex: Male

DRUGS (1)
  1. NIPENT [Suspect]
     Indication: T-CELL LYMPHOMA
     Dosage: 5 MG/M2, DAY 1-3

REACTIONS (12)
  - BLOOD CULTURE POSITIVE [None]
  - BRONCHOPULMONARY ASPERGILLOSIS [None]
  - CHEST PAIN [None]
  - COUGH [None]
  - CYTOMEGALOVIRUS TEST POSITIVE [None]
  - FUNGAL INFECTION [None]
  - HEPATOMEGALY [None]
  - HYPERPYREXIA [None]
  - JAUNDICE [None]
  - LUNG INFECTION [None]
  - RESPIRATORY FAILURE [None]
  - SPLENOMEGALY [None]
